FAERS Safety Report 25403373 (Version 1)
Quarter: 2025Q2

REPORT INFORMATION
  Report Type: Spontaneous
  Country: US (occurrence: US)
  Receive Date: 20250605
  Receipt Date: 20250605
  Transmission Date: 20250716
  Serious: No
  Sender: BRACCO
  Company Number: US-BRACCO-2025US02755

PATIENT

DRUGS (1)
  1. POSLUMA [Suspect]
     Active Substance: FLOTUFOLASTAT F-18
     Indication: Positron emission tomogram
     Dates: start: 20250417, end: 20250417

REACTIONS (3)
  - Wrong product administered [Unknown]
  - Product dispensing error [Unknown]
  - No adverse event [Unknown]

NARRATIVE: CASE EVENT DATE: 20250417
